FAERS Safety Report 9384263 (Version 2)
Quarter: 2013Q3

REPORT INFORMATION
  Report Type: Spontaneous
  Country: DE (occurrence: DE)
  Receive Date: 20130705
  Receipt Date: 20130802
  Transmission Date: 20140515
  Serious: Yes (Hospitalization)
  Sender: FDA-Public Use
  Company Number: DE-AMGEN-DEUSP2013038522

PATIENT
  Age: 75 Year
  Sex: Female
  Weight: 75 kg

DRUGS (6)
  1. PROLIA [Suspect]
     Indication: OSTEOPOROTIC FRACTURE
     Dosage: 60 MG, Q6MO
     Route: 058
     Dates: start: 201210
  2. DECORTIN H [Concomitant]
     Indication: POLYMYALGIA RHEUMATICA
     Dosage: 6 UNIT, QD
     Route: 048
  3. LANTAREL [Concomitant]
     Indication: POLYMYALGIA RHEUMATICA
     Dosage: 15 UNIT, QWK
     Route: 048
  4. MOXONIDIN [Concomitant]
     Indication: HYPERTENSION
     Dosage: 0.2 UNIT, UNK
     Route: 048
  5. AMLODIPIN                          /00972401/ [Concomitant]
     Indication: HYPERTENSION
     Dosage: 5 UNIT, UNK
     Route: 048
  6. FOLSAN [Concomitant]
     Dosage: 5 UNIT, QWK
     Route: 048

REACTIONS (4)
  - Localised infection [Unknown]
  - Erythema [Not Recovered/Not Resolved]
  - Pain in extremity [Unknown]
  - Paronychia [Unknown]
